FAERS Safety Report 6128553-6 (Version None)
Quarter: 2009Q1

REPORT INFORMATION
  Report Type: 
  Country: None (occurrence: None)
  Receive Date: 20090323
  Receipt Date: 20090311
  Transmission Date: 20090719
  Serious: Yes (Other)
  Sender: FDA-Public Use
  Company Number: GB-ELI_LILLY_AND_COMPANY-GB200903002974

PATIENT
  Age: 44 Year
  Sex: Female

DRUGS (2)
  1. ZYPREXA [Suspect]
     Dosage: 5 MG, 2/D
  2. METHADONE HCL [Concomitant]
     Dosage: 75 MG, DAILY (1/D)

REACTIONS (1)
  - ELECTROCARDIOGRAM QT PROLONGED [None]
